FAERS Safety Report 7475422-5 (Version None)
Quarter: 2011Q2

REPORT INFORMATION
  Report Type: 
  Country: None (occurrence: None)
  Receive Date: 20110512
  Receipt Date: 20110504
  Transmission Date: 20111010
  Serious: Yes (Death)
  Sender: FDA-Public Use
  Company Number: ES-SHIRE-SPV1-2011-00736

PATIENT
  Sex: Male

DRUGS (2)
  1. ACETYL SALICYLIC ACID USP BAT [Suspect]
     Indication: PLATELET AGGREGATION INHIBITION
     Dosage: 100 MG, 1X/DAY:QD
     Route: 048
     Dates: start: 20060821
  2. ANAGRELIDE HYDROCHLORIDE [Suspect]
     Indication: ESSENTIAL THROMBOCYTHAEMIA
     Dosage: 3.5 MG, 1X/DAY:QD
     Route: 048
     Dates: start: 20081128

REACTIONS (1)
  - SUBDURAL HAEMORRHAGE [None]
